FAERS Safety Report 7543960 (Version 3)
Quarter: 2013Q1

REPORT INFORMATION
  Report Type: Spontaneous
  Country: FR (occurrence: FR)
  Receive Date: 20100816
  Receipt Date: 20130205
  Transmission Date: 20140127
  Serious: Yes (Hospitalization)
  Sender: FDA-Public Use
  Company Number: FR-CELGENEUS-056-20785-10080471

PATIENT
  Age: 62 Year
  Sex: Male
  Weight: 68 kg

DRUGS (18)
  1. THALIDOMIDE CELGENE [Suspect]
     Indication: PLASMA CELL MYELOMA
     Dosage: 100 MILLIGRAM
     Route: 048
     Dates: start: 20100625, end: 201009
  2. VELCADE [Interacting]
     Indication: PLASMA CELL MYELOMA
     Dosage: 1.3 MILLIGRAM/SQ. METER
     Route: 041
     Dates: start: 20100625, end: 201009
  3. DEXAMETHASONE [Suspect]
     Indication: PLASMA CELL MYELOMA
     Dosage: 40 MILLIGRAM
     Route: 065
     Dates: start: 20100625, end: 201009
  4. MYOLASTAN [Suspect]
     Indication: PRODUCT USED FOR UNKNOWN INDICATION
     Route: 048
     Dates: start: 20100625, end: 20100714
  5. BACTRIM [Suspect]
     Indication: PRODUCT USED FOR UNKNOWN INDICATION
     Route: 048
     Dates: start: 20100625, end: 20100803
  6. OMEPRAZOLE [Suspect]
     Indication: PRODUCT USED FOR UNKNOWN INDICATION
     Route: 048
     Dates: start: 20100625, end: 20100803
  7. ALLOPURINOL [Suspect]
     Indication: HYPERURICAEMIA
     Route: 065
     Dates: start: 20100625, end: 20100803
  8. ORACILLINE [Suspect]
     Indication: PRODUCT USED FOR UNKNOWN INDICATION
     Route: 065
     Dates: start: 20100625, end: 20100803
  9. SKENAN [Suspect]
     Indication: PAIN
     Route: 048
     Dates: start: 201005, end: 20100730
  10. ASPEGIC [Concomitant]
     Indication: PLASMA CELL MYELOMA
     Dosage: 100 MILLIGRAM
     Route: 048
     Dates: start: 20100625
  11. ORACILLIN [Concomitant]
     Indication: INFECTION PROPHYLAXIS
     Dosage: 1 IU (INTERNATIONAL UNIT)
     Route: 048
     Dates: start: 20100625
  12. BACTRIM FORTE [Concomitant]
     Indication: INFECTION PROPHYLAXIS
     Dosage: 3 DOSAGE FORMS
     Route: 048
     Dates: start: 20100625
  13. ZELITREX [Concomitant]
     Indication: INFECTION PROPHYLAXIS
     Dosage: 1000 MILLIGRAM
     Route: 048
     Dates: start: 20100625
  14. COTAREG [Concomitant]
     Indication: PRODUCT USED FOR UNKNOWN INDICATION
     Route: 065
  15. FLUCONAZOLE [Concomitant]
     Indication: PRODUCT USED FOR UNKNOWN INDICATION
     Route: 065
     Dates: start: 20100723
  16. INIPOMP [Concomitant]
     Indication: PRODUCT USED FOR UNKNOWN INDICATION
     Route: 065
  17. RULID [Concomitant]
     Indication: PRODUCT USED FOR UNKNOWN INDICATION
     Route: 065
  18. MELPHALAN [Concomitant]
     Indication: PLASMA CELL MYELOMA
     Dosage: 100 MILLIGRAM
     Route: 048
     Dates: start: 20101019

REACTIONS (2)
  - Acquired epidermolysis bullosa [Recovered/Resolved]
  - Febrile neutropenia [Unknown]
